FAERS Safety Report 5739459-6 (Version None)
Quarter: 2008Q2

REPORT INFORMATION
  Report Type: 
  Country: None (occurrence: None)
  Receive Date: 20080515
  Receipt Date: 20080506
  Transmission Date: 20081010
  Serious: Yes (Hospitalization)
  Sender: FDA-Public Use
  Company Number: DE-PFIZER INC-2008039720

PATIENT
  Sex: Female

DRUGS (13)
  1. SUTENT [Suspect]
     Indication: OVARIAN CANCER
     Dosage: TEXT:50 MG OD DAILY TDD:50 MG
     Route: 048
     Dates: start: 20080130, end: 20080428
  2. PROPRANOLOL HYDROCHLORIDE [Concomitant]
     Route: 048
  3. THYROXIN [Concomitant]
     Route: 048
  4. TOFRANIL [Concomitant]
     Route: 048
  5. PANCREATIN TRIPLE STRENGTH CAP [Concomitant]
     Route: 048
  6. AMITRIPTYLINE HCL [Concomitant]
     Route: 048
  7. NOVALDIN INJ [Concomitant]
     Route: 048
  8. MST [Concomitant]
     Route: 048
  9. LYRICA [Concomitant]
     Route: 048
  10. SEVREDOL [Concomitant]
     Route: 048
  11. DIMETICONE [Concomitant]
     Route: 048
  12. MCP ^HEXAL^ [Concomitant]
     Route: 048
  13. AMPHO-MORONAL [Concomitant]
     Route: 048

REACTIONS (1)
  - CIRCULATORY COLLAPSE [None]
